FAERS Safety Report 10394583 (Version 2)
Quarter: 2014Q3

REPORT INFORMATION
  Report Type: Report from Study
  Country: US (occurrence: US)
  Receive Date: 20140820
  Receipt Date: 20140820
  Transmission Date: 20150326
  Serious: No
  Sender: FDA-Public Use
  Company Number: US-ALEXION-A201304621

PATIENT

DRUGS (14)
  1. CALCITRIOL. [Concomitant]
     Active Substance: CALCITRIOL
     Indication: HYPOPARATHYROIDISM
  2. VITAMIN C [Concomitant]
     Active Substance: ASCORBIC ACID
     Indication: VITAMIN SUPPLEMENTATION
     Route: 065
  3. SYNTHROID [Concomitant]
     Active Substance: LEVOTHYROXINE SODIUM
     Indication: THYROID DISORDER
     Route: 065
  4. FOLIC ACID. [Concomitant]
     Active Substance: FOLIC ACID
     Indication: PAROXYSMAL NOCTURNAL HAEMOGLOBINURIA
     Route: 065
  5. VITAMIN D                          /00107901/ [Concomitant]
     Active Substance: ERGOCALCIFEROL
     Indication: CALCIUM METABOLISM DISORDER
     Route: 065
  6. TUMS                               /00193601/ [Concomitant]
     Indication: MINERAL SUPPLEMENTATION
     Route: 065
  7. PREDNISONE. [Concomitant]
     Active Substance: PREDNISONE
     Indication: POLYMYALGIA RHEUMATICA
     Route: 065
  8. PRILOSEC [Concomitant]
     Active Substance: OMEPRAZOLE MAGNESIUM
     Indication: GASTROINTESTINAL DISORDER
     Route: 065
  9. SOLIRIS [Suspect]
     Active Substance: ECULIZUMAB
     Indication: PAROXYSMAL NOCTURNAL HAEMOGLOBINURIA
     Dosage: UNK
     Route: 042
     Dates: start: 20131002
  10. CALCITRIOL. [Concomitant]
     Active Substance: CALCITRIOL
     Indication: CALCIUM METABOLISM DISORDER
     Route: 065
  11. FERROUS SULFATE [Concomitant]
     Active Substance: FERROUS SULFATE\FERROUS SULFATE, DRIED
     Indication: PAROXYSMAL NOCTURNAL HAEMOGLOBINURIA
     Route: 065
  12. POTASSIUM CHLORIDE. [Concomitant]
     Active Substance: POTASSIUM CHLORIDE
     Indication: PRODUCT USED FOR UNKNOWN INDICATION
     Route: 065
  13. SIMVASTATIN. [Concomitant]
     Active Substance: SIMVASTATIN
     Indication: BLOOD CHOLESTEROL ABNORMAL
     Route: 065
  14. BABY ASPIRIN [Concomitant]
     Active Substance: ASPIRIN
     Indication: COAGULOPATHY
     Route: 065

REACTIONS (5)
  - Hepatic enzyme increased [Unknown]
  - Depressed mood [Not Recovered/Not Resolved]
  - Blood pressure increased [Recovering/Resolving]
  - Weight increased [Recovering/Resolving]
  - Malaise [Unknown]
